FAERS Safety Report 5233522-4 (Version None)
Quarter: 2007Q1

REPORT INFORMATION
  Report Type: 
  Country: None (occurrence: None)
  Receive Date: 20070208
  Receipt Date: 20070206
  Transmission Date: 20070707
  Serious: Yes (Hospitalization)
  Sender: FDA-Public Use
  Company Number: DE-ELI_LILLY_AND_COMPANY-DE200702000134

PATIENT
  Sex: Male

DRUGS (3)
  1. ZYPREXA [Suspect]
     Route: 048
  2. BENPERIDOL [Concomitant]
  3. LEVADOL [Concomitant]

REACTIONS (1)
  - WHITE BLOOD CELL COUNT DECREASED [None]
